FAERS Safety Report 5300501-8 (Version None)
Quarter: 2007Q2

REPORT INFORMATION
  Report Type: 
  Country: None (occurrence: None)
  Receive Date: 20070413
  Receipt Date: 20070413
  Transmission Date: 20071010
  Serious: Yes (Other)
  Sender: FDA-Public Use
  Company Number: None

PATIENT
  Age: 58 Year
  Sex: Male
  Weight: 99.7913 kg

DRUGS (1)
  1. LEVOSTATIN 20 MG [Suspect]
     Indication: BLOOD CHOLESTEROL INCREASED
     Dosage: 20 MG ONCE PER DAY PO
     Route: 048
     Dates: start: 20070320, end: 20070408

REACTIONS (2)
  - BACK PAIN [None]
  - PAIN IN EXTREMITY [None]
